FAERS Safety Report 10915681 (Version 1)
Quarter: 2015Q1

REPORT INFORMATION
  Report Type: Spontaneous
  Country: US (occurrence: None)
  Receive Date: 20150311
  Receipt Date: 20150311
  Transmission Date: 20150721
  Serious: Yes (Other)
  Sender: FDA-Public Use
  Company Number: None

PATIENT
  Sex: Male
  Weight: 76.2 kg

DRUGS (10)
  1. ONDANSETRON ODT 8 MG TABLET MYLAN [Suspect]
     Active Substance: ONDANSETRON
     Indication: ABDOMINAL PAIN UPPER
     Dosage: 30 - UP TO 4XDOS. IF NEEDED - SUBLINGUAL (UNDER TONGUE)
     Dates: start: 20150110, end: 20150110
  2. RESTORIL [Concomitant]
     Active Substance: TEMAZEPAM
  3. ONDANSETRON ODT 8 MG TABLET MYLAN [Suspect]
     Active Substance: ONDANSETRON
     Indication: DIARRHOEA
     Dosage: 30 - UP TO 4XDOS. IF NEEDED - SUBLINGUAL (UNDER TONGUE)
     Dates: start: 20150110, end: 20150110
  4. NORCO [Concomitant]
     Active Substance: ACETAMINOPHEN\HYDROCODONE BITARTRATE
  5. DILAUDID [Concomitant]
     Active Substance: HYDROMORPHONE HYDROCHLORIDE
  6. XANAX [Concomitant]
     Active Substance: ALPRAZOLAM
  7. ONDANSETRON ODT 8 MG TABLET MYLAN [Suspect]
     Active Substance: ONDANSETRON
     Indication: NAUSEA
     Dosage: 30 - UP TO 4XDOS. IF NEEDED - SUBLINGUAL (UNDER TONGUE)
     Dates: start: 20150110, end: 20150110
  8. ONDANSETRON ODT 8 MG TABLET MYLAN [Suspect]
     Active Substance: ONDANSETRON
     Indication: VOMITING
     Dosage: 30 - UP TO 4XDOS. IF NEEDED - SUBLINGUAL (UNDER TONGUE)
     Dates: start: 20150110, end: 20150110
  9. DESRYL [Concomitant]
  10. ONDANSETRON ODT 8 MG TABLET MYLAN [Suspect]
     Active Substance: ONDANSETRON
     Indication: DYSPEPSIA
     Dosage: 30 - UP TO 4XDOS. IF NEEDED - SUBLINGUAL (UNDER TONGUE)
     Dates: start: 20150110, end: 20150110

REACTIONS (5)
  - Product taste abnormal [None]
  - Product solubility abnormal [None]
  - Vomiting [None]
  - Product substitution issue [None]
  - Product size issue [None]
